FAERS Safety Report 10706484 (Version 4)
Quarter: 2015Q1

REPORT INFORMATION
  Report Type: Spontaneous
  Country: US (occurrence: US)
  Receive Date: 20150113
  Receipt Date: 20150225
  Transmission Date: 20150721
  Serious: No
  Sender: FDA-Public Use
  Company Number: US-TEVA-533914USA

PATIENT
  Age: 41 Year
  Sex: Female
  Weight: 63.56 kg

DRUGS (4)
  1. SYNTHROID [Concomitant]
     Active Substance: LEVOTHYROXINE SODIUM
     Indication: THYROIDECTOMY
  2. CALCITRIOL. [Concomitant]
     Active Substance: CALCITRIOL
     Indication: PARATHYROID DISORDER
  3. CALCIUM [Concomitant]
     Active Substance: CALCIUM
     Indication: PARATHYROID DISORDER
  4. PLAN B ONE-STEP [Suspect]
     Active Substance: LEVONORGESTREL
     Indication: POST COITAL CONTRACEPTION
     Dosage: 1.5 MILLIGRAM DAILY;
     Route: 048
     Dates: start: 20150102, end: 20150102

REACTIONS (2)
  - Vaginal haemorrhage [Recovered/Resolved]
  - Menstruation delayed [Recovered/Resolved]

NARRATIVE: CASE EVENT DATE: 20150107
